FAERS Safety Report 5280520-0 (Version None)
Quarter: 2007Q1

REPORT INFORMATION
  Report Type: 
  Country: None (occurrence: None)
  Receive Date: 20070329
  Receipt Date: 20070320
  Transmission Date: 20070707
  Serious: Yes (Hospitalization)
  Sender: FDA-Public Use
  Company Number: JP-JNJFOC-20070305582

PATIENT
  Sex: Female

DRUGS (14)
  1. LEVOFLOXACIN [Suspect]
     Indication: GASTROENTERITIS SALMONELLA
     Route: 048
     Dates: start: 20061017, end: 20061019
  2. VANCOMYCIN [Concomitant]
     Indication: PSEUDOMEMBRANOUS COLITIS
     Route: 048
  3. CEREKINON [Concomitant]
     Indication: GASTROENTERITIS SALMONELLA
     Route: 048
  4. BIOFERMIN R [Concomitant]
     Indication: GASTROENTERITIS SALMONELLA
     Route: 048
  5. AMINOFLUID [Concomitant]
     Route: 042
  6. AMINOFLUID [Concomitant]
     Indication: GASTROENTERITIS SALMONELLA
     Route: 042
  7. C-PARA [Concomitant]
     Route: 042
  8. C-PARA [Concomitant]
     Indication: GASTROENTERITIS SALMONELLA
     Route: 042
  9. SOLDEM 3A [Concomitant]
     Indication: GASTROENTERITIS SALMONELLA
     Route: 042
  10. TANNALBIN [Concomitant]
     Indication: GASTROENTERITIS SALMONELLA
     Route: 048
  11. SOLULACT [Concomitant]
     Indication: GASTROENTERITIS SALMONELLA
     Route: 042
  12. VEEN D [Concomitant]
     Indication: GASTROENTERITIS SALMONELLA
     Route: 042
  13. ALLELOCK [Concomitant]
     Route: 048
  14. BROACT [Concomitant]
     Route: 042

REACTIONS (1)
  - ENTEROCOLITIS HAEMORRHAGIC [None]
